FAERS Safety Report 5013408-0 (Version None)
Quarter: 2006Q2

REPORT INFORMATION
  Report Type: 
  Country: None (occurrence: None)
  Receive Date: 20060530
  Receipt Date: 20050725
  Transmission Date: 20061013
  Serious: Yes (Disabling)
  Sender: FDA-Public Use
  Company Number: US-BRISTOL-MYERS SQUIBB COMPANY-13049358

PATIENT
  Age: 58 Year
  Sex: Female

DRUGS (11)
  1. ORENCIA [Suspect]
     Indication: RHEUMATOID ARTHRITIS
     Route: 042
     Dates: start: 20020606, end: 20050713
  2. METHOTREXATE [Suspect]
     Indication: RHEUMATOID ARTHRITIS
     Dates: start: 20001010, end: 20050720
  3. FOLATE [Concomitant]
     Dates: start: 20001010
  4. PREMARIN [Concomitant]
  5. CALCIUM CARBONATE [Concomitant]
     Dates: start: 20001010
  6. DILTIAZEM HCL [Concomitant]
  7. LASIX [Concomitant]
     Dates: start: 20030417
  8. M.V.I. [Concomitant]
  9. PERCOCET [Concomitant]
     Dates: start: 20030303
  10. GABITRIL [Concomitant]
     Dates: start: 20030903
  11. LEXAPRO [Concomitant]
     Dates: start: 20030903

REACTIONS (2)
  - ASTHMA [None]
  - COUGH [None]
